FAERS Safety Report 23285732 (Version 1)
Quarter: 2023Q4

REPORT INFORMATION
  Report Type: Spontaneous
  Country: ES (occurrence: ES)
  Receive Date: 20231212
  Receipt Date: 20231212
  Transmission Date: 20240109
  Serious: Yes (Hospitalization, Other)
  Sender: FDA-Public Use
  Company Number: ES-ASTELLAS-2023US034798

PATIENT
  Age: 54 Year
  Sex: Male

DRUGS (2)
  1. PADCEV [Suspect]
     Active Substance: ENFORTUMAB VEDOTIN-EJFV
     Indication: Bladder transitional cell carcinoma stage IV
     Dosage: 119 MG (1.25 MG/M2), CYCLIC (DAYS 1, 8 AND 15 OF EVERY 28 DAYS)
     Route: 042
     Dates: start: 20230830
  2. PADCEV [Suspect]
     Active Substance: ENFORTUMAB VEDOTIN-EJFV
     Dosage: 119 MG (1.25 MG/M2), CYCLIC (DAYS 1, 8 AND 15 OF EVERY 28 DAYS)
     Route: 042
     Dates: start: 20231004

REACTIONS (3)
  - Confusional state [Unknown]
  - Respiratory distress [Unknown]
  - Pneumonitis [Recovering/Resolving]

NARRATIVE: CASE EVENT DATE: 20231019
